FAERS Safety Report 7770575-3 (Version None)
Quarter: 2011Q3

REPORT INFORMATION
  Report Type: 
  Country: None (occurrence: None)
  Receive Date: 20110922
  Receipt Date: 20110912
  Transmission Date: 20111222
  Serious: Yes (Other)
  Sender: FDA-Public Use
  Company Number: PHEH2011US03951

PATIENT
  Sex: Female

DRUGS (3)
  1. RECLAST [Suspect]
     Dosage: UNK UKN, UNK
     Route: 042
     Dates: start: 20110901
  2. VITAMIN D [Concomitant]
     Dosage: UNK UKN, UNK
  3. CALCIUM CARBONATE [Concomitant]
     Dosage: UNK UKN, UNK

REACTIONS (11)
  - CONFUSIONAL STATE [None]
  - CEREBROVASCULAR ACCIDENT [None]
  - VOMITING [None]
  - DIARRHOEA [None]
  - PALPITATIONS [None]
  - DIZZINESS [None]
  - OROPHARYNGEAL PAIN [None]
  - MUSCLE TWITCHING [None]
  - DRY MOUTH [None]
  - SPEECH DISORDER [None]
  - NAUSEA [None]
